FAERS Safety Report 6792709-X (Version None)
Quarter: 2010Q2

REPORT INFORMATION
  Report Type: 
  Country: None (occurrence: None)
  Receive Date: 20100624
  Receipt Date: 20081209
  Transmission Date: 20101027
  Serious: Yes (Other)
  Sender: FDA-Public Use
  Company Number: US-PFIZER INC-2008068086

PATIENT
  Sex: Female
  Weight: 90.718 kg

DRUGS (8)
  1. ACCURETIC [Suspect]
     Indication: HYPERTENSION
     Dosage: 20/25 MG
     Dates: start: 20080801
  2. QUINAPRIL HCL [Suspect]
     Dates: start: 20080801, end: 20080101
  3. ACCUPRIL [Suspect]
     Dates: start: 20080101, end: 20080101
  4. KLOR-CON [Concomitant]
  5. FUROSEMIDE [Concomitant]
  6. ACTOS [Concomitant]
  7. METFORMIN HCL [Concomitant]
  8. CATAPRES-TTS-1 [Concomitant]

REACTIONS (1)
  - DRUG INEFFECTIVE [None]
